FAERS Safety Report 18369093 (Version 1)
Quarter: 2020Q4

REPORT INFORMATION
  Report Type: Report from Study
  Country: IT (occurrence: IT)
  Receive Date: 20201011
  Receipt Date: 20201011
  Transmission Date: 20210114
  Serious: Yes (Other)
  Sender: FDA-Public Use
  Company Number: NVSC2020IT249535

PATIENT
  Age: 29 Year
  Sex: Female

DRUGS (2)
  1. BAF312 [Suspect]
     Active Substance: SIPONIMOD
     Dosage: 1 MG, QD
     Route: 048
     Dates: start: 20200615
  2. BAF312 [Suspect]
     Active Substance: SIPONIMOD
     Indication: PROGRESSIVE MULTIPLE SCLEROSIS
     Dosage: 1 MG, QD
     Route: 048
     Dates: start: 20200511

REACTIONS (7)
  - Paraparesis [Recovered/Resolved]
  - Multiple sclerosis relapse [Recovered/Resolved]
  - Ataxia [Recovered/Resolved]
  - Gait disturbance [Recovered/Resolved]
  - Central nervous system lesion [Unknown]
  - Paresis [Recovered/Resolved]
  - Coordination abnormal [Recovered/Resolved]

NARRATIVE: CASE EVENT DATE: 20200615
